FAERS Safety Report 15823861 (Version 1)
Quarter: 2019Q1

REPORT INFORMATION
  Report Type: Spontaneous
  Country: CN (occurrence: CN)
  Receive Date: 20190114
  Receipt Date: 20190114
  Transmission Date: 20190417
  Serious: Yes (Other)
  Sender: FDA-Public Use
  Company Number: CN-GE HEALTHCARE LIFE SCIENCES-2019CSU000154

PATIENT

DRUGS (5)
  1. OMNIPAQUE [Suspect]
     Active Substance: IOHEXOL
     Indication: ANGIOGRAM
     Dosage: 75 ML, SINGLE
     Route: 042
  2. OMNIPAQUE [Suspect]
     Active Substance: IOHEXOL
     Indication: VERTEBRAL ARTERY STENOSIS
  3. ASPIRIN. [Concomitant]
     Active Substance: ASPIRIN
  4. ATORVASTATIN CALCIUM. [Concomitant]
     Active Substance: ATORVASTATIN CALCIUM
  5. HEPARIN [Concomitant]
     Active Substance: HEPARIN SODIUM
     Indication: VERTEBRAL ARTERY STENOSIS

REACTIONS (7)
  - Blindness cortical [Recovered/Resolved]
  - Vomiting [Recovered/Resolved]
  - Nausea [Recovered/Resolved]
  - Unresponsive to stimuli [Recovered/Resolved]
  - Dizziness [Recovered/Resolved]
  - Generalised tonic-clonic seizure [Recovered/Resolved]
  - Amnestic disorder [Recovered/Resolved]
